FAERS Safety Report 4708533-5 (Version None)
Quarter: 2005Q3

REPORT INFORMATION
  Report Type: 
  Country: None (occurrence: None)
  Receive Date: 20050707
  Receipt Date: 20050525
  Transmission Date: 20060218
  Serious: Yes (Hospitalization)
  Sender: FDA-Public Use
  Company Number: JP-GLAXOSMITHKLINE-B0382518A

PATIENT
  Age: 74 Year
  Sex: Female

DRUGS (7)
  1. VALTREX [Suspect]
     Indication: HERPES ZOSTER
     Dosage: 1000MG THREE TIMES PER DAY
     Route: 048
     Dates: start: 20050522, end: 20050523
  2. LANDEL [Concomitant]
     Indication: HYPERTENSION
     Dosage: 20MG PER DAY
     Route: 048
     Dates: start: 20050524, end: 20050602
  3. STADERM [Concomitant]
     Indication: HERPES ZOSTER
     Dosage: 4G PER DAY
     Route: 061
     Dates: start: 20050524, end: 20050607
  4. LOXONIN [Concomitant]
     Indication: HERPES ZOSTER
     Route: 048
     Dates: start: 20050522, end: 20050523
  5. MUCOSTA [Concomitant]
     Route: 048
     Dates: start: 20050522, end: 20050523
  6. CYANOCOBALAMIN [Concomitant]
     Indication: HERPES ZOSTER
     Dosage: 3U PER DAY
     Route: 048
     Dates: start: 20050522, end: 20050523
  7. POLARAMINE [Concomitant]
     Indication: PRURITUS
     Dosage: 6U PER DAY
     Route: 048
     Dates: start: 20050523, end: 20050523

REACTIONS (7)
  - BLOOD CREATININE INCREASED [None]
  - BLOOD POTASSIUM INCREASED [None]
  - BLOOD UREA INCREASED [None]
  - HYPOAESTHESIA [None]
  - MALAISE [None]
  - NAUSEA [None]
  - RENAL FAILURE ACUTE [None]
